FAERS Safety Report 6842598-X (Version None)
Quarter: 2010Q3

REPORT INFORMATION
  Report Type: 
  Country: None (occurrence: None)
  Receive Date: 20100714
  Receipt Date: 20070727
  Transmission Date: 20110219
  Serious: No
  Sender: FDA-Public Use
  Company Number: US-PFIZER INC-2007064079

PATIENT
  Sex: Female
  Weight: 64.2 kg

DRUGS (2)
  1. CHANTIX [Suspect]
     Indication: SMOKING CESSATION THERAPY
     Dates: start: 20070103, end: 20070301
  2. DEPO-PROVERA [Concomitant]
     Route: 030

REACTIONS (2)
  - DYSGEUSIA [None]
  - NAUSEA [None]
